FAERS Safety Report 4976339-8 (Version None)
Quarter: 2006Q2

REPORT INFORMATION
  Report Type: 
  Country: None (occurrence: None)
  Receive Date: 20060419
  Receipt Date: 20050216
  Transmission Date: 20061013
  Serious: Yes (Death)
  Sender: FDA-Public Use
  Company Number: GB-SANOFI-SYNTHELABO-F01200500276

PATIENT
  Sex: Male
  Weight: 71 kg

DRUGS (2)
  1. OXALIPLATIN [Suspect]
     Indication: BILIARY CANCER METASTATIC
     Dosage: 190 MG (100 MG/M2 OVER 2 HOURS IV INFUSION ON DAY 2, Q2W)
     Route: 042
     Dates: start: 20050211, end: 20050211
  2. GEMCITABINE [Suspect]
     Dosage: 1900 MG (1000 MG/M2 OVER 100 MINUTES IV INFUSION ON DAY 1, Q2W)
     Route: 042
     Dates: start: 20050210, end: 20050210

REACTIONS (8)
  - ANOREXIA [None]
  - DIARRHOEA [None]
  - DISEASE PROGRESSION [None]
  - DYSPNOEA [None]
  - EPIGASTRIC DISCOMFORT [None]
  - LOSS OF CONSCIOUSNESS [None]
  - RESPIRATORY ARREST [None]
  - VOMITING [None]
